FAERS Safety Report 20590817 (Version 1)
Quarter: 2022Q1

REPORT INFORMATION
  Report Type: Spontaneous
  Country: US (occurrence: None)
  Receive Date: 20220314
  Receipt Date: 20220314
  Transmission Date: 20220423
  Serious: Yes (Other)
  Sender: FDA-Public Use
  Company Number: None

PATIENT
  Age: 52 Year
  Sex: Male
  Weight: 103.5 kg

DRUGS (1)
  1. METHYLPREDNISOLONE 4MG [Suspect]
     Active Substance: METHYLPREDNISOLONE
     Indication: Mesenteric panniculitis
     Dosage: OTHER QUANTITY : 21 TABLET(S);?OTHER FREQUENCY : DECLINING;?
     Route: 048
     Dates: start: 20220308, end: 20220313

REACTIONS (4)
  - Abdominal pain [None]
  - Lactose intolerance [None]
  - Headache [None]
  - Reaction to excipient [None]

NARRATIVE: CASE EVENT DATE: 20220311
